APPROVED DRUG PRODUCT: PROVENTIL
Active Ingredient: ALBUTEROL
Strength: 0.09MG/INH
Dosage Form/Route: AEROSOL, METERED;INHALATION
Application: N017559 | Product #001
Applicant: SCHERING CORP SUB SCHERING PLOUGH CORP
Approved: Approved Prior to Jan 1, 1982 | RLD: No | RS: No | Type: DISCN